FAERS Safety Report 23338641 (Version 1)
Quarter: 2023Q4

REPORT INFORMATION
  Report Type: Spontaneous
  Country: US (occurrence: US)
  Receive Date: 20231226
  Receipt Date: 20231226
  Transmission Date: 20240109
  Serious: No
  Sender: FDA-Public Use
  Company Number: US-OPELLA-2023OHG018845

PATIENT
  Sex: Female

DRUGS (1)
  1. GOLD BOND MEDICATED ECZEMA RELIEF [Suspect]
     Active Substance: OATMEAL

REACTIONS (5)
  - Pharyngeal swelling [Unknown]
  - Urticaria [Unknown]
  - Erythema [Unknown]
  - Pruritus [Unknown]
  - Application site pain [Unknown]
